FAERS Safety Report 13434542 (Version 1)
Quarter: 2017Q2

REPORT INFORMATION
  Report Type: Spontaneous
  Country: US (occurrence: US)
  Receive Date: 20170412
  Receipt Date: 20170412
  Transmission Date: 20170830
  Serious: Yes (Other)
  Sender: FDA-Public Use
  Company Number: None

PATIENT
  Age: 32 Year
  Sex: Male
  Weight: 76.5 kg

DRUGS (8)
  1. BACLOFEN. [Concomitant]
     Active Substance: BACLOFEN
  2. CLONAZEPAM. [Concomitant]
     Active Substance: CLONAZEPAM
  3. AMOXICILLIN CLAVULANATE [Suspect]
     Active Substance: AMOXICILLIN\CLAVULANIC ACID
     Indication: PARONYCHIA
     Route: 048
     Dates: start: 20160314, end: 20160323
  4. AZO CRANBERRY [Concomitant]
     Active Substance: DIETARY SUPPLEMENT
  5. OXYBUTYNIN [Concomitant]
     Active Substance: OXYBUTYNIN
  6. VITAMIN C [Concomitant]
     Active Substance: ASCORBIC ACID
  7. METAMUCIL [Concomitant]
     Active Substance: PLANTAGO SEED
  8. MULTIVITAMIN (CENTRUM MEN^S) [Concomitant]

REACTIONS (2)
  - Clostridium difficile infection [None]
  - Diarrhoea [None]

NARRATIVE: CASE EVENT DATE: 20160322
